FAERS Safety Report 7628307-5 (Version None)
Quarter: 2011Q3

REPORT INFORMATION
  Report Type: 
  Country: None (occurrence: None)
  Receive Date: 20110722
  Receipt Date: 20110714
  Transmission Date: 20111222
  Serious: Yes (Hospitalization)
  Sender: FDA-Public Use
  Company Number: IT-JNJFOC-20110608104

PATIENT
  Sex: Female

DRUGS (2)
  1. CYTARABINE [Suspect]
     Indication: ACUTE LYMPHOCYTIC LEUKAEMIA
     Route: 042
     Dates: start: 20091227, end: 20091230
  2. SPORANOX [Suspect]
     Indication: ACUTE LYMPHOCYTIC LEUKAEMIA
     Route: 048
     Dates: start: 20091225, end: 20091230

REACTIONS (4)
  - STAPHYLOCOCCAL SEPSIS [None]
  - RASH [None]
  - FEBRILE NEUTROPENIA [None]
  - CONJUNCTIVITIS [None]
